APPROVED DRUG PRODUCT: METHYLPHENIDATE HYDROCHLORIDE
Active Ingredient: METHYLPHENIDATE HYDROCHLORIDE
Strength: 20MG
Dosage Form/Route: CAPSULE, EXTENDED RELEASE;ORAL
Application: A211796 | Product #002 | TE Code: AB1
Applicant: GRANULES PHARMACEUTICALS INC
Approved: May 23, 2019 | RLD: No | RS: No | Type: RX